FAERS Safety Report 6966316-X (Version None)
Quarter: 2010Q3

REPORT INFORMATION
  Report Type: 
  Country: None (occurrence: None)
  Receive Date: 20100903
  Receipt Date: 20100826
  Transmission Date: 20110219
  Serious: Yes (Hospitalization, Other)
  Sender: FDA-Public Use
  Company Number: AU-AMGEN-QUU421323

PATIENT
  Sex: Female
  Weight: 79.9 kg

DRUGS (5)
  1. NPLATE [Suspect]
     Indication: IDIOPATHIC THROMBOCYTOPENIC PURPURA
     Route: 058
     Dates: start: 20100304, end: 20100705
  2. NPLATE [Suspect]
     Route: 058
     Dates: start: 20100403
  3. UNSPECIFIED STEROIDS [Concomitant]
  4. PREDNISOLONE [Concomitant]
     Dates: start: 20091222, end: 20100514
  5. UNSPECIFIED MEDICATION [Concomitant]

REACTIONS (4)
  - BONE MARROW DISORDER [None]
  - LEUKOCYTOSIS [None]
  - MYELODYSPLASTIC SYNDROME [None]
  - THERAPEUTIC RESPONSE DECREASED [None]
